FAERS Safety Report 9511719 (Version 2)
Quarter: 2013Q4

REPORT INFORMATION
  Report Type: Spontaneous
  Country: DE (occurrence: DE)
  Receive Date: 20130910
  Receipt Date: 20131008
  Transmission Date: 20140711
  Serious: Yes (Other)
  Sender: FDA-Public Use
  Company Number: DE-AMGEN-DEUSP2013062575

PATIENT
  Sex: Male
  Weight: 75 kg

DRUGS (3)
  1. XGEVA [Suspect]
     Indication: PROSTATE CANCER METASTATIC
     Dosage: 120, Q4WK
     Route: 058
     Dates: start: 20111129, end: 20130606
  2. DOCETAXEL [Concomitant]
     Indication: PROSTATE CANCER
     Dosage: 120 MG, UNK
     Route: 042
     Dates: start: 20120815, end: 20130314
  3. CHEMOTHERAPEUTICS [Concomitant]
     Dosage: UNK
     Dates: start: 20110323

REACTIONS (4)
  - Osteonecrosis of jaw [Recovering/Resolving]
  - Tooth loss [Unknown]
  - Ulcer [Recovered/Resolved]
  - Pain [Recovered/Resolved]
